FAERS Safety Report 5363373-1 (Version None)
Quarter: 2007Q2

REPORT INFORMATION
  Report Type: 
  Country: None (occurrence: None)
  Receive Date: 20070620
  Receipt Date: 20070606
  Transmission Date: 20071010
  Serious: Yes (Hospitalization)
  Sender: FDA-Public Use
  Company Number: FR-ELI_LILLY_AND_COMPANY-FR200702004289

PATIENT
  Age: 72 Year
  Sex: Female
  Weight: 63 kg

DRUGS (5)
  1. FORTEO [Suspect]
     Indication: OSTEOPOROSIS
     Dosage: 20 UG, DAILY (1/D)
     Route: 058
     Dates: start: 20060316
  2. ZOLOFT [Concomitant]
     Indication: DEPRESSION
     Route: 048
  3. CALCIDOSE [Concomitant]
     Indication: OSTEOPOROSIS
     Route: 048
  4. DAFALGAN [Concomitant]
     Indication: PAIN
     Dosage: 3 G, DAILY (1/D)
     Route: 048
  5. AVLOCARDYL [Concomitant]
     Indication: TACHYARRHYTHMIA
     Route: 048

REACTIONS (5)
  - FALL [None]
  - NAUSEA [None]
  - PELVIC FRACTURE [None]
  - VERTIGO [None]
  - VOMITING [None]
